FAERS Safety Report 8021532-3 (Version None)
Quarter: 2012Q1

REPORT INFORMATION
  Report Type: 
  Country: None (occurrence: None)
  Receive Date: 20120104
  Receipt Date: 20120103
  Transmission Date: 20120608
  Serious: Yes (Hospitalization)
  Sender: FDA-Public Use
  Company Number: US-B.I. PHARMACEUTICALS,INC./RIDGEFIELD-2011-BP-27547BP

PATIENT
  Sex: Female

DRUGS (6)
  1. PRADAXA [Suspect]
     Indication: ATRIAL FIBRILLATION
     Dates: start: 20110923, end: 20111011
  2. DIGOXIN [Concomitant]
     Indication: ATRIAL FIBRILLATION
     Dosage: 0.125 MG
  3. METOPROLOL TARTRATE [Concomitant]
     Indication: ATRIAL FIBRILLATION
     Dosage: 50 MG
  4. FUROSEMIDE [Concomitant]
     Indication: OEDEMA
     Dosage: 40 MG
  5. LEVOXYL [Concomitant]
     Indication: HYPOTHYROIDISM
  6. OMEPRAZOLE [Concomitant]
     Indication: GASTROOESOPHAGEAL REFLUX DISEASE
     Dosage: 20 MG

REACTIONS (5)
  - SKIN ULCER [None]
  - SKIN LESION [None]
  - SKIN HAEMORRHAGE [None]
  - MOUTH ULCERATION [None]
  - CONTUSION [None]
